FAERS Safety Report 10223067 (Version 1)
Quarter: 2014Q2

REPORT INFORMATION
  Report Type: Report from Study
  Country: US (occurrence: US)
  Receive Date: 20140607
  Receipt Date: 20140607
  Transmission Date: 20141212
  Serious: Yes (Hospitalization, Other)
  Sender: FDA-Public Use
  Company Number: PHHY2014US067026

PATIENT
  Age: 61 Year
  Sex: Male
  Weight: 112 kg

DRUGS (23)
  1. BASILIXIMAB [Suspect]
     Indication: RENAL TRANSPLANT
     Dosage: 20 MG (DAY 0 TO DAY 4)
     Route: 042
     Dates: start: 20131230
  2. BASILIXIMAB [Suspect]
     Dosage: 20 MG (DAY 0 TO DAY 4)
     Route: 042
     Dates: end: 20140102
  3. MYCOPHENOLATE MOFETIL [Suspect]
     Indication: RENAL TRANSPLANT
     Dosage: 1000 MG, BID
     Route: 048
     Dates: start: 20131230
  4. CARDURA [Concomitant]
     Dosage: UNK UKN, UNK
     Dates: start: 20140130
  5. ARANESP [Concomitant]
     Dosage: UNK UKN, UNK
     Dates: start: 20140216
  6. BACTRIM [Concomitant]
     Dosage: UNK UKN, UNK
     Dates: start: 20140130
  7. COLACE [Concomitant]
     Dosage: UNK UKN, UNK
     Dates: start: 20140130
  8. FAMOTIDINE [Concomitant]
     Dosage: 20 MG, UNK
     Dates: start: 20140130
  9. FLOMAX//MORNIFLUMATE [Concomitant]
     Dosage: 0.4 MG, UNK
     Dates: start: 20140130
  10. GABAPENTIN [Concomitant]
     Dosage: 100 MG, UNK
     Dates: start: 20130312
  11. HYDRALAZINE [Concomitant]
     Dosage: 100 MG, UNK
  12. LANTUS [Concomitant]
     Dosage: UNK UKN, UNK
     Dates: start: 20140130
  13. LEVAQUIN [Concomitant]
     Dosage: 500 MG, UNK
     Dates: start: 20140310
  14. METOPROLOL [Concomitant]
     Dosage: 100 MG, UNK
     Dates: start: 20131203
  15. NIFEDICAL [Concomitant]
     Dosage: 60 MG, UNK
     Dates: start: 20140130
  16. NOVOLOG [Concomitant]
     Dosage: UNK UKN, UNK
     Dates: start: 20140130
  17. PLAVIX [Concomitant]
     Dosage: 75 MG, UNK
     Dates: start: 20140305
  18. PREDNISONE [Concomitant]
     Dosage: 5 MG, UNK
     Dates: start: 20140130
  19. SENSIPAR [Concomitant]
     Dosage: 30 MG, UNK
     Dates: start: 20120221
  20. SODIUM BICARBONATE [Concomitant]
     Dosage: 650 MG, UNK
  21. VALCYTE [Concomitant]
     Dosage: 450 MG, UNK
     Dates: start: 20140130
  22. BENADRYL                           /00647601/ [Concomitant]
     Dosage: UNK UKN, UNK
  23. TACROLIMUS [Concomitant]
     Dosage: 1 MG, UNK
     Dates: start: 20140130

REACTIONS (9)
  - Anaemia [Recovered/Resolved]
  - Haematocrit decreased [Unknown]
  - Haemoglobin decreased [Unknown]
  - Red blood cell count decreased [Unknown]
  - Blood pressure abnormal [Unknown]
  - Cytomegalovirus infection [Unknown]
  - Human polyomavirus infection [Unknown]
  - Epstein-Barr virus infection [Unknown]
  - Herpes zoster [Unknown]
